FAERS Safety Report 24868949 (Version 2)
Quarter: 2025Q3

REPORT INFORMATION
  Report Type: Spontaneous
  Country: CH (occurrence: CH)
  Receive Date: 20250121
  Receipt Date: 20250810
  Transmission Date: 20251021
  Serious: Yes (Hospitalization)
  Sender: ALEXION PHARMACEUTICALS
  Company Number: CH-SA-2024SA383181

PATIENT

DRUGS (1)
  1. BEYFORTUS [Suspect]
     Active Substance: NIRSEVIMAB-ALIP
     Indication: Respiratory syncytial virus infection
     Route: 065

REACTIONS (3)
  - Respiratory syncytial virus infection [Unknown]
  - Drug ineffective [Unknown]
  - Therapeutic response decreased [Unknown]
